FAERS Safety Report 9029885 (Version 1)
Quarter: 2013Q1

REPORT INFORMATION
  Report Type: Report from Study
  Country: DE (occurrence: DE)
  Receive Date: 20130124
  Receipt Date: 20130124
  Transmission Date: 20140127
  Serious: Yes (Hospitalization)
  Sender: FDA-Public Use
  Company Number: DE-BAXTER-2013BAX002499

PATIENT
  Age: 46 Year
  Sex: Male
  Weight: 79 kg

DRUGS (15)
  1. ENDOXAN 1G [Suspect]
     Indication: B-CELL LYMPHOMA
     Route: 065
     Dates: start: 20090220
  2. ENDOXAN 1G [Suspect]
     Route: 065
     Dates: start: 20090515
  3. ENDOXAN 1G [Suspect]
     Route: 065
     Dates: start: 20090604
  4. RITUXIMAB [Suspect]
     Indication: B-CELL LYMPHOMA
     Route: 065
     Dates: start: 20090220
  5. RITUXIMAB [Suspect]
     Route: 065
     Dates: start: 20090514
  6. RITUXIMAB [Suspect]
     Route: 065
     Dates: start: 20090604
  7. DOXORUBICIN [Suspect]
     Indication: B-CELL LYMPHOMA
     Route: 065
     Dates: start: 20090220
  8. DOXORUBICIN [Suspect]
     Route: 065
     Dates: start: 20090515
  9. DOXORUBICIN [Suspect]
     Route: 065
     Dates: start: 20090604
  10. VINCRISTINE [Suspect]
     Indication: B-CELL LYMPHOMA
     Route: 065
     Dates: start: 20090220
  11. VINCRISTINE [Suspect]
     Route: 065
     Dates: start: 20090515
  12. VINCRISTINE [Suspect]
     Route: 065
     Dates: start: 20090604
  13. PREDNISONE [Suspect]
     Indication: B-CELL LYMPHOMA
     Route: 065
     Dates: start: 20090220
  14. PREDNISONE [Suspect]
     Route: 065
     Dates: start: 20090515
  15. PREDNISONE [Suspect]
     Route: 065
     Dates: start: 20090604

REACTIONS (2)
  - Purulence [Recovered/Resolved]
  - Appendicitis perforated [Recovered/Resolved]
